FAERS Safety Report 7552292-8 (Version None)
Quarter: 2011Q2

REPORT INFORMATION
  Report Type: 
  Country: None (occurrence: None)
  Receive Date: 20110616
  Receipt Date: 20050323
  Transmission Date: 20111010
  Serious: Yes (Other)
  Sender: FDA-Public Use
  Company Number: PHHO2005BR04917

PATIENT
  Age: 58 Year
  Sex: Female
  Weight: 93 kg

DRUGS (3)
  1. DORFLEX [Concomitant]
     Indication: HEADACHE
  2. EXFORGE [Suspect]
     Indication: HYPERTENSION
     Dosage: 160 / 5 MG
     Route: 048
  3. METFORMIN HCL [Concomitant]
     Indication: DIABETES MELLITUS

REACTIONS (1)
  - HYPERTENSION [None]
